FAERS Safety Report 24112768 (Version 1)
Quarter: 2024Q3

REPORT INFORMATION
  Report Type: Spontaneous
  Country: PL (occurrence: PL)
  Receive Date: 20240719
  Receipt Date: 20240719
  Transmission Date: 20241016
  Serious: Yes (Other)
  Sender: GUERBET
  Company Number: PL-GUERBET / POLAND SP. Z.O.O.-PL-20240045

PATIENT
  Age: 55 Year
  Sex: Male

DRUGS (1)
  1. OPTIRAY 350 [Suspect]
     Active Substance: IOVERSOL
     Indication: Computerised tomogram thorax
     Route: 042
     Dates: start: 20240708, end: 20240708

REACTIONS (6)
  - Feeling abnormal [Recovered/Resolved]
  - Disorganised speech [Recovered/Resolved]
  - Lacrimation increased [Recovered/Resolved]
  - Chills [Recovered/Resolved]
  - Chest discomfort [Recovered/Resolved]
  - Blood pressure increased [Recovered/Resolved]

NARRATIVE: CASE EVENT DATE: 20240708
